FAERS Safety Report 9338757 (Version 3)
Quarter: 2013Q4

REPORT INFORMATION
  Report Type: Spontaneous
  Country: DE (occurrence: DE)
  Receive Date: 20130610
  Receipt Date: 20131114
  Transmission Date: 20140711
  Serious: Yes (Death, Life-Threatening)
  Sender: FDA-Public Use
  Company Number: DE-BAYER-2013-069860

PATIENT
  Age: 54 Year
  Sex: Female
  Weight: 55 kg

DRUGS (8)
  1. AVALOX [Suspect]
     Indication: CHRONIC OBSTRUCTIVE PULMONARY DISEASE
     Dosage: 400 MG, QD
     Dates: start: 20130510, end: 20130510
  2. BERODUAL [Concomitant]
  3. SYMBICORT [Concomitant]
  4. LEFLUNOMIDE [Concomitant]
  5. FOLSAEURE [Concomitant]
  6. PREDNISOLON [Concomitant]
  7. RANTUDIL [Concomitant]
  8. FEM 7 [Concomitant]

REACTIONS (5)
  - Cyanosis [Fatal]
  - Brain injury [Fatal]
  - Dyspnoea [Fatal]
  - Laryngeal oedema [Fatal]
  - Pharyngeal oedema [Fatal]
